FAERS Safety Report 21519324 (Version 3)
Quarter: 2023Q1

REPORT INFORMATION
  Report Type: Report from Study
  Country: US (occurrence: US)
  Receive Date: 20221028
  Receipt Date: 20230130
  Transmission Date: 20230417
  Serious: Yes (Hospitalization)
  Sender: FDA-Public Use
  Company Number: US-EXELIXIS-CABO-22057167

PATIENT
  Sex: Male

DRUGS (1)
  1. CABOMETYX [Suspect]
     Active Substance: CABOZANTINIB S-MALATE
     Indication: Metastases to central nervous system
     Dosage: 60 MG, QD
     Route: 048
     Dates: start: 20220830, end: 202301

REACTIONS (5)
  - Gastrointestinal disorder [Unknown]
  - Jaundice [Unknown]
  - Constipation [Unknown]
  - Liver function test abnormal [Unknown]
  - Off label use [Unknown]
